FAERS Safety Report 4603127-4 (Version None)
Quarter: 2005Q1

REPORT INFORMATION
  Report Type: 
  Country: None (occurrence: None)
  Receive Date: 20050309
  Receipt Date: 20050225
  Transmission Date: 20050727
  Serious: Yes (Hospitalization, Other)
  Sender: FDA-Public Use
  Company Number: US-BRISTOL-MYERS SQUIBB COMPANY-12877577

PATIENT
  Age: 35 Year
  Sex: Male

DRUGS (9)
  1. VIDEX [Suspect]
     Indication: HIV INFECTION
     Route: 048
     Dates: start: 20020418, end: 20050224
  2. KALETRA [Suspect]
     Indication: HIV INFECTION
     Dosage: 799.8/199.8 MG
     Route: 048
     Dates: start: 20020402, end: 20050224
  3. VIREAD [Suspect]
     Indication: HIV INFECTION
     Route: 048
     Dates: start: 20020418, end: 20050224
  4. NORTRIPTYLINE HCL [Concomitant]
     Dates: start: 20041115
  5. ENTEX PSE [Concomitant]
  6. BACTRIM [Concomitant]
     Dates: start: 20050201
  7. AVELOX [Concomitant]
  8. DIFLUCAN [Concomitant]
  9. PHENERGAN [Concomitant]

REACTIONS (6)
  - DEHYDRATION [None]
  - ELECTROCARDIOGRAM ABNORMAL [None]
  - HYPERLACTACIDAEMIA [None]
  - LIVER FUNCTION TEST ABNORMAL [None]
  - NAUSEA [None]
  - WEIGHT DECREASED [None]
